FAERS Safety Report 9199998 (Version 1)
Quarter: 2013Q1

REPORT INFORMATION
  Report Type: Spontaneous
  Country: CA (occurrence: CA)
  Receive Date: 20130329
  Receipt Date: 20130329
  Transmission Date: 20140127
  Serious: Yes (Other)
  Sender: FDA-Public Use
  Company Number: CA-GLAXOSMITHKLINE-A1017548A

PATIENT
  Sex: Male

DRUGS (3)
  1. VOTRIENT [Suspect]
     Indication: RENAL CANCER METASTATIC
     Dosage: 800MG PER DAY
     Route: 048
     Dates: start: 20111214
  2. ALLOPURINOL [Concomitant]
  3. ZOMETA [Concomitant]

REACTIONS (4)
  - Abasia [Unknown]
  - Loss of control of legs [Unknown]
  - Pain [Unknown]
  - Insomnia [Unknown]
